FAERS Safety Report 4705575-0 (Version None)
Quarter: 2005Q2

REPORT INFORMATION
  Report Type: 
  Country: None (occurrence: None)
  Receive Date: 20050629
  Receipt Date: 20041028
  Transmission Date: 20051028
  Serious: Yes (Hospitalization)
  Sender: FDA-Public Use
  Company Number: 200414130FR

PATIENT
  Age: 64 Year
  Sex: Male
  Weight: 85 kg

DRUGS (9)
  1. HEPARIN [Suspect]
     Indication: CARDIAC OPERATION
     Dosage: 6000 IU/DAY IVB
     Route: 040
     Dates: start: 20041012, end: 20041012
  2. ASPIRIN [Concomitant]
  3. PLAVIX [Concomitant]
  4. TENORMIN [Concomitant]
  5. TAHOR [Concomitant]
  6. COVERSYL [Concomitant]
  7. LASIX [Concomitant]
  8. DIAMICRON [Concomitant]
  9. ALLOPURINOL [Concomitant]

REACTIONS (2)
  - ARTERIOGRAM CORONARY ABNORMAL [None]
  - CHEST PAIN [None]
